FAERS Safety Report 15724519 (Version 2)
Quarter: 2019Q1

REPORT INFORMATION
  Report Type: Spontaneous
  Country: US (occurrence: US)
  Receive Date: 20181215
  Receipt Date: 20190122
  Transmission Date: 20190417
  Serious: Yes (Hospitalization)
  Sender: FDA-Public Use
  Company Number: US-OTSUKA-2017_014856

PATIENT
  Age: 36 Year
  Sex: Male

DRUGS (9)
  1. ABILIFY [Suspect]
     Active Substance: ARIPIPRAZOLE
     Dosage: 10 MG, QD
     Route: 065
  2. ABILIFY [Suspect]
     Active Substance: ARIPIPRAZOLE
     Dosage: 20 MG, QD
     Route: 065
     Dates: end: 201412
  3. ABILIFY [Suspect]
     Active Substance: ARIPIPRAZOLE
     Indication: ANXIETY
     Dosage: 15 MG, QD (ONCE AT BEDTIME)
     Route: 065
  4. AMBIEN [Concomitant]
     Active Substance: ZOLPIDEM TARTRATE
     Indication: PRODUCT USED FOR UNKNOWN INDICATION
     Dosage: 10 MG, (AS NEEDED)
     Route: 065
  5. LUNESTA [Concomitant]
     Active Substance: ESZOPICLONE
     Indication: INSOMNIA
     Dosage: 3 MG, QD (AS NEEDED AT BEDTIME)
     Route: 065
  6. XANAX [Concomitant]
     Active Substance: ALPRAZOLAM
     Indication: PRODUCT USED FOR UNKNOWN INDICATION
     Dosage: UNK
     Route: 065
  7. ABILIFY [Suspect]
     Active Substance: ARIPIPRAZOLE
     Indication: BIPOLAR DISORDER
     Dosage: 5 MG, QD
     Route: 065
     Dates: start: 200711
  8. KLONOPIN [Concomitant]
     Active Substance: CLONAZEPAM
     Indication: ANXIETY
     Dosage: 0.5 MG, BID
     Route: 065
  9. KLONOPIN [Concomitant]
     Active Substance: CLONAZEPAM
     Dosage: 1 MG, QD
     Route: 065

REACTIONS (23)
  - Product use in unapproved indication [Unknown]
  - Compulsive sexual behaviour [Recovered/Resolved]
  - Fall [Unknown]
  - Syncope [Unknown]
  - Insomnia [Unknown]
  - Gambling disorder [Recovered/Resolved]
  - Poisoning [Unknown]
  - Tachyphrenia [Unknown]
  - Malaise [Unknown]
  - Economic problem [Unknown]
  - Homeless [Unknown]
  - Injury [Unknown]
  - Sexually transmitted disease [Unknown]
  - Hypomania [Unknown]
  - Nightmare [Unknown]
  - Psychosexual disorder [Unknown]
  - Divorced [Unknown]
  - Loss of employment [Unknown]
  - Road traffic accident [Unknown]
  - Emotional distress [Unknown]
  - Neuropsychiatric symptoms [Unknown]
  - Bankruptcy [Unknown]
  - Obsessive-compulsive disorder [Recovered/Resolved]
